FAERS Safety Report 25523731 (Version 1)
Quarter: 2025Q3

REPORT INFORMATION
  Report Type: Other
  Country: JP (occurrence: JP)
  Receive Date: 20250707
  Receipt Date: 20250707
  Transmission Date: 20251020
  Serious: Yes (Death, Hospitalization, Congenital Anomaly, Other)
  Sender: BIONPHARMA INC.
  Company Number: JP-Bion-015053

PATIENT
  Sex: Female

DRUGS (4)
  1. IBUPROFEN [Suspect]
     Active Substance: IBUPROFEN
     Indication: Product used for unknown indication
     Route: 064
  2. DOMPERIDONE [Concomitant]
     Active Substance: DOMPERIDONE
     Indication: Product used for unknown indication
     Route: 064
  3. MYCOPHENOLATE MOFETIL [Concomitant]
     Active Substance: MYCOPHENOLATE MOFETIL
     Indication: Product used for unknown indication
     Route: 064
  4. TELMISARTAN [Concomitant]
     Active Substance: TELMISARTAN
     Indication: Product used for unknown indication
     Route: 064

REACTIONS (17)
  - Foetal exposure during pregnancy [Fatal]
  - Foetal growth restriction [Fatal]
  - Microcephaly [Fatal]
  - Craniofacial deformity [Fatal]
  - Congenital musculoskeletal disorder [Fatal]
  - Mayer-Rokitansky-Kuster-Hauser syndrome [Fatal]
  - Renal aplasia [Fatal]
  - Neonatal respiratory failure [Fatal]
  - Patent ductus arteriosus [Fatal]
  - Oesophageal atresia [Fatal]
  - Tracheo-oesophageal fistula [Fatal]
  - Congenital central nervous system anomaly [Fatal]
  - Neonatal respiratory distress [Fatal]
  - Hepatic function abnormal [Fatal]
  - Neonatal gastrointestinal haemorrhage [Fatal]
  - Intraventricular haemorrhage neonatal [Fatal]
  - Hypoxic-ischaemic encephalopathy [Fatal]
